FAERS Safety Report 4388931-2 (Version None)
Quarter: 2004Q2

REPORT INFORMATION
  Report Type: 
  Country: None (occurrence: None)
  Receive Date: 20040630
  Receipt Date: 20040630
  Transmission Date: 20050107
  Serious: Yes (Other)
  Sender: FDA-Public Use
  Company Number: None

PATIENT
  Sex: Female

DRUGS (8)
  1. ESTRATEST [Suspect]
     Indication: HORMONE REPLACEMENT THERAPY
     Dosage: DAILY PO
     Route: 048
  2. PREMARIN [Suspect]
     Indication: HORMONE REPLACEMENT THERAPY
     Dosage: DAILY PO
     Route: 048
  3. PREMPRO [Suspect]
     Indication: HORMONE REPLACEMENT THERAPY
     Dosage: DAILY PO
     Route: 048
  4. PROVERA [Suspect]
     Indication: HORMONE REPLACEMENT THERAPY
     Dosage: DAILY PO
     Route: 048
  5. MEDROXYPROGESTERONE ACETATE [Suspect]
     Indication: HORMONE REPLACEMENT THERAPY
     Dosage: DAILY PO
     Route: 048
  6. ESTROGEN (ESTROGEN) [Suspect]
     Indication: HORMONE REPLACEMENT THERAPY
     Dosage: DAILY PO
     Route: 048
  7. MEDROXYPROGESTERONE ACETATE [Suspect]
     Indication: HORMONE REPLACEMENT THERAPY
     Dosage: DAILY PO
     Route: 048
  8. CHEMOTHERAPY DRUGS() [Suspect]
     Indication: BREAST CANCER

REACTIONS (2)
  - BREAST CANCER [None]
  - CARDIOVASCULAR DISORDER [None]
